FAERS Safety Report 7322205-2 (Version None)
Quarter: 2011Q1

REPORT INFORMATION
  Report Type: 
  Country: None (occurrence: None)
  Receive Date: 20110301
  Receipt Date: 20110223
  Transmission Date: 20110831
  Serious: Yes (Other)
  Sender: FDA-Public Use
  Company Number: US-ASTRAZENECA-2007UW25944

PATIENT
  Age: 630 Month
  Sex: Female
  Weight: 126.1 kg

DRUGS (11)
  1. SEROQUEL [Suspect]
     Indication: BIPOLAR DISORDER
     Dosage: 25 MG TO 900 MG
     Route: 048
     Dates: start: 19991001, end: 20051001
  2. SEROQUEL [Suspect]
     Route: 048
     Dates: start: 19991001
  3. NAPROXEN [Concomitant]
     Dates: start: 19990602
  4. HYDROCODONE BITARTRATE [Concomitant]
     Indication: PAIN
     Dosage: 5/500 TAB TAKE 1 TO 2 TABLETS EVERY 4 TO 6 HOURS AS NEEDED
     Dates: start: 19990602
  5. SEROQUEL [Suspect]
     Route: 048
     Dates: start: 19991001
  6. GEODON [Concomitant]
     Dosage: 80 MG TO 160 MG
     Dates: start: 20010801, end: 20060101
  7. METHYLPREDNISOLONE [Concomitant]
     Dosage: 4 MG
     Dates: start: 19990916
  8. MEDROXYPROGESTERONE [Concomitant]
  9. SEROQUEL [Suspect]
     Indication: SLEEP DISORDER
     Dosage: 25 MG TO 900 MG
     Route: 048
     Dates: start: 19991001, end: 20051001
  10. DEPAKOTE [Concomitant]
     Dosage: 250 MG TO 1500 MG
     Dates: start: 19981128, end: 20030701
  11. ESTRADIOL [Concomitant]
     Dates: start: 19991015

REACTIONS (23)
  - FLANK PAIN [None]
  - TREMOR [None]
  - COUGH [None]
  - DIARRHOEA [None]
  - DYSPNOEA [None]
  - HYPOGLYCAEMIA [None]
  - ABDOMINAL PAIN [None]
  - HEADACHE [None]
  - BARRETT'S OESOPHAGUS [None]
  - WEIGHT INCREASED [None]
  - HYPERTENSION [None]
  - CHRONIC OBSTRUCTIVE PULMONARY DISEASE [None]
  - GLUCOSE TOLERANCE IMPAIRED [None]
  - PULMONARY EMBOLISM [None]
  - HYPERCHOLESTEROLAEMIA [None]
  - HYPERLIPIDAEMIA [None]
  - TYPE 2 DIABETES MELLITUS [None]
  - PNEUMONIA [None]
  - OBESITY [None]
  - DUODENAL ULCER [None]
  - PULMONARY CONGESTION [None]
  - FUNGAL INFECTION [None]
  - INSOMNIA [None]
